FAERS Safety Report 13480741 (Version 2)
Quarter: 2019Q1

REPORT INFORMATION
  Report Type: Report from Study
  Country: US (occurrence: US)
  Receive Date: 20170425
  Receipt Date: 20190211
  Transmission Date: 20190417
  Serious: Yes (Death, Hospitalization)
  Sender: FDA-Public Use
  Company Number: US-ACTELION-A-US2017-152979

PATIENT
  Age: 87 Year
  Sex: Female

DRUGS (1)
  1. UPTRAVI [Suspect]
     Active Substance: SELEXIPAG
     Indication: PULMONARY ARTERIAL HYPERTENSION
     Dosage: 1600 MCG, BID
     Route: 048
     Dates: start: 20160505, end: 20190129

REACTIONS (3)
  - Haemoglobin decreased [Unknown]
  - Joint dislocation [Unknown]
  - Respiratory failure [Fatal]

NARRATIVE: CASE EVENT DATE: 20170301
